FAERS Safety Report 17025420 (Version 2)
Quarter: 2019Q4

REPORT INFORMATION
  Report Type: Spontaneous
  Country: DE (occurrence: DE)
  Receive Date: 20191113
  Receipt Date: 20191125
  Transmission Date: 20200122
  Serious: Yes (Hospitalization, Other)
  Sender: FDA-Public Use
  Company Number: DE-BAYER-2019-025674

PATIENT
  Age: 29 Year
  Sex: Female

DRUGS (1)
  1. KYLEENA [Suspect]
     Active Substance: LEVONORGESTREL
     Indication: CONTRACEPTION
     Dosage: 17.5 MCG/24HR, CONT
     Route: 015
     Dates: start: 20180226

REACTIONS (6)
  - Uterine perforation [Not Recovered/Not Resolved]
  - Pregnancy with contraceptive device [Recovered/Resolved]
  - Syncope [None]
  - Skull fractured base [Recovered/Resolved]
  - Drug ineffective [None]
  - Complication of device insertion [None]

NARRATIVE: CASE EVENT DATE: 20180226
